FAERS Safety Report 23236827 (Version 1)
Quarter: 2023Q4

REPORT INFORMATION
  Report Type: Spontaneous
  Country: US (occurrence: US)
  Receive Date: 20231128
  Receipt Date: 20231128
  Transmission Date: 20240109
  Serious: Yes (Other)
  Sender: FDA-Public Use
  Company Number: US-ACELLA PHARMACEUTICALS, LLC-2023ALO00078

PATIENT
  Age: 60 Year
  Sex: Female
  Weight: 62.585 kg

DRUGS (4)
  1. NP THYROID [Suspect]
     Active Substance: LEVOTHYROXINE\LIOTHYRONINE
     Indication: Hypothyroidism
     Dosage: 15 MG (1 15 MG TABLET), 2X/DAY
     Dates: start: 202301, end: 2023
  2. NP THYROID [Suspect]
     Active Substance: LEVOTHYROXINE\LIOTHYRONINE
     Dosage: 30 MG (1 30 MG TABLET), 1X/DAY
     Dates: start: 2023, end: 202308
  3. VITAMINS NOS [Concomitant]
     Active Substance: VITAMINS
  4. MAGNESIUM [Concomitant]
     Active Substance: MAGNESIUM

REACTIONS (5)
  - Anal polyp [Recovered/Resolved]
  - Polyp [Recovered/Resolved]
  - Papilloma viral infection [Not Recovered/Not Resolved]
  - Dysphonia [Recovered/Resolved]
  - Throat clearing [Recovered/Resolved]

NARRATIVE: CASE EVENT DATE: 20230201
